FAERS Safety Report 9946753 (Version 1)
Quarter: 2014Q1

REPORT INFORMATION
  Report Type: Report from Study
  Country: US (occurrence: US)
  Receive Date: 20140303
  Receipt Date: 20140303
  Transmission Date: 20141002
  Serious: No
  Sender: FDA-Public Use
  Company Number: US-ABBVIE-13P-163-1065776-00

PATIENT
  Sex: Male
  Weight: 108.96 kg

DRUGS (3)
  1. HUMIRA [Suspect]
     Indication: OSTEOARTHRITIS
     Dates: start: 2012
  2. HUMIRA [Suspect]
     Indication: ARTHRITIS
     Dates: end: 2012
  3. BLOOD PRESSURE MEDICATION [Concomitant]
     Indication: PRODUCT USED FOR UNKNOWN INDICATION

REACTIONS (3)
  - Exposure to communicable disease [Unknown]
  - Off label use [Unknown]
  - Inappropriate schedule of drug administration [Unknown]
